FAERS Safety Report 8536403-3 (Version None)
Quarter: 2012Q3

REPORT INFORMATION
  Report Type: 
  Country: None (occurrence: None)
  Receive Date: 20120725
  Receipt Date: 20120716
  Transmission Date: 20120928
  Serious: Yes (Hospitalization)
  Sender: FDA-Public Use
  Company Number: FR-MSD-1207FRA004209

PATIENT

DRUGS (3)
  1. PUREGON [Suspect]
     Indication: OVULATION INDUCTION
     Dosage: UNK
     Route: 058
     Dates: start: 20110507, end: 20110517
  2. DECAPEPTYL (TRIPTORELIN PAMOATE) [Suspect]
     Indication: OVULATION INDUCTION
     Dosage: 0.05 MG, QD
     Route: 058
     Dates: start: 20110507, end: 20110517
  3. CHORIONIC GONADOTROPIN [Suspect]
     Indication: OVULATION INDUCTION
     Dosage: 1 DF, ONCE
     Dates: start: 20110518, end: 20110518

REACTIONS (2)
  - OVARIAN HYPERSTIMULATION SYNDROME [None]
  - ABDOMINAL CAVITY DRAINAGE [None]
